FAERS Safety Report 7965737-6 (Version None)
Quarter: 2011Q4

REPORT INFORMATION
  Report Type: 
  Country: None (occurrence: None)
  Receive Date: 20111208
  Receipt Date: 20111205
  Transmission Date: 20120403
  Serious: Yes (Death, Hospitalization)
  Sender: FDA-Public Use
  Company Number: US-CELGENEUS-163-21880-11073299

PATIENT
  Sex: Female

DRUGS (17)
  1. VELCADE [Concomitant]
     Indication: MULTIPLE MYELOMA
     Dosage: 2.2 MILLIGRAM
     Route: 065
     Dates: start: 20110503, end: 20110805
  2. VANCOMYCIN [Concomitant]
     Dosage: 1 GRAM
     Route: 041
     Dates: start: 20110801
  3. SOLU-MEDROL [Concomitant]
     Dosage: 80 MILLILITER
     Route: 065
  4. DECADRON [Concomitant]
     Dosage: 40 MILLIGRAM
     Route: 065
     Dates: start: 20110601, end: 20110825
  5. LEVAQUIN [Concomitant]
     Dosage: 500 MILLIGRAM
     Route: 041
     Dates: start: 20110801
  6. ALBUTEROL [Concomitant]
     Dosage: 20 MILLIGRAM
     Route: 065
     Dates: start: 20110801
  7. PRILOSEC [Concomitant]
     Dosage: 20 MILLIGRAM
     Route: 065
     Dates: end: 20110825
  8. PREDNISONE TAB [Concomitant]
     Dosage: 10 MILLIGRAM
     Route: 065
  9. DULCOLAX [Concomitant]
     Indication: CONSTIPATION
     Route: 065
     Dates: start: 20110801
  10. DUONEB [Concomitant]
     Route: 065
     Dates: start: 20110801
  11. LIPITOR [Concomitant]
     Dosage: 40 MILLIGRAM
     Route: 065
     Dates: end: 20110825
  12. ATIVAN [Concomitant]
     Route: 065
     Dates: start: 20110822
  13. REVLIMID [Suspect]
     Dosage: 5 MILLIGRAM
     Route: 048
     Dates: start: 20110708
  14. MORPHINE [Concomitant]
     Route: 065
     Dates: start: 20110822
  15. LASIX [Concomitant]
     Route: 041
     Dates: start: 20110801
  16. LOPRESSOR [Concomitant]
     Indication: HYPERTENSION
     Dosage: 50 MILLIGRAM
     Route: 065
     Dates: end: 20110825
  17. DIOVAN [Interacting]
     Indication: HYPERTENSION
     Dosage: 80 MILLIGRAM
     Route: 065
     Dates: start: 20110601, end: 20110825

REACTIONS (4)
  - CARDIAC FAILURE ACUTE [None]
  - RENAL FAILURE [None]
  - ABDOMINAL PAIN UPPER [None]
  - ABASIA [None]
